FAERS Safety Report 6858013-6 (Version None)
Quarter: 2010Q3

REPORT INFORMATION
  Report Type: 
  Country: None (occurrence: None)
  Receive Date: 20100715
  Receipt Date: 20100621
  Transmission Date: 20110219
  Serious: Yes (Other)
  Sender: FDA-Public Use
  Company Number: 2010-00012

PATIENT
  Sex: Female

DRUGS (1)
  1. NTG SKIN ID TONER SALYCYLIC ACID 2% [Suspect]
     Indication: ACNE
     Dosage: TOPICAL
     Route: 061

REACTIONS (1)
  - HYPERSENSITIVITY [None]
